FAERS Safety Report 9638349 (Version 1)
Quarter: 2013Q4

REPORT INFORMATION
  Report Type: Spontaneous
  Country: JP (occurrence: JP)
  Receive Date: 20131022
  Receipt Date: 20131022
  Transmission Date: 20140711
  Serious: Yes (Other)
  Sender: FDA-Public Use
  Company Number: JP-GLAXOSMITHKLINE-B0922277A

PATIENT
  Sex: Female
  Weight: 62 kg

DRUGS (2)
  1. ZEFIX 100 [Suspect]
     Indication: HEPATITIS B
     Route: 048
     Dates: start: 20130909
  2. BARACLUDE [Suspect]
     Indication: PRODUCT USED FOR UNKNOWN INDICATION
     Route: 048
     Dates: end: 20130908

REACTIONS (2)
  - Abortion induced [Unknown]
  - Exposure during pregnancy [Unknown]
